FAERS Safety Report 4703407-8 (Version None)
Quarter: 2005Q2

REPORT INFORMATION
  Report Type: 
  Country: None (occurrence: None)
  Receive Date: 20050629
  Receipt Date: 20050616
  Transmission Date: 20051028
  Serious: Yes (Congenital Anomaly)
  Sender: FDA-Public Use
  Company Number: NALX20050005

PATIENT
  Sex: Female
  Weight: 2.03 kg

DRUGS (3)
  1. NALOXONE [Suspect]
     Dosage: 0.4 MG 2 DOSES T-PLAC
     Route: 064
     Dates: start: 20040608, end: 20040608
  2. METHADONE HCL [Suspect]
     Dosage: 35 MG DAILY T-PLAC
     Route: 064
     Dates: start: 20030101, end: 20040813
  3. DIAZEPAM [Suspect]
     Dosage: 20 MG T-PLAC
     Route: 064
     Dates: end: 20040813

REACTIONS (6)
  - CEREBRAL VENTRICLE DILATATION [None]
  - CONGENITAL ANOMALY [None]
  - DRUG EXPOSURE DURING PREGNANCY [None]
  - DRUG WITHDRAWAL SYNDROME NEONATAL [None]
  - MICROCEPHALY [None]
  - PORENCEPHALY [None]
